FAERS Safety Report 8564194-9 (Version None)
Quarter: 2012Q3

REPORT INFORMATION
  Report Type: 
  Country: None (occurrence: None)
  Receive Date: 20120803
  Receipt Date: 20120727
  Transmission Date: 20120928
  Serious: Yes (Other)
  Sender: FDA-Public Use
  Company Number: US-ASTRAZENECA-2011SE41555

PATIENT
  Age: 761 Month
  Sex: Female

DRUGS (11)
  1. LEVOTHYROXINE SODIUM [Concomitant]
     Indication: THYROID DISORDER
  2. ULTRAM [Concomitant]
  3. PEPCID [Concomitant]
  4. GLIPIZIDE [Concomitant]
     Dates: start: 20110317
  5. DITROPAN [Concomitant]
  6. OMEPRAZOLE [Concomitant]
     Route: 048
  7. NEXIUM [Suspect]
     Route: 048
     Dates: end: 20110317
  8. TYLENOL (CAPLET) [Concomitant]
  9. SYNTHROID [Concomitant]
     Dates: start: 20030401
  10. NEXIUM [Suspect]
     Indication: GASTROOESOPHAGEAL REFLUX DISEASE
     Route: 048
     Dates: start: 20030301, end: 20110101
  11. GLIPIZIDE [Concomitant]
     Indication: DIABETES MELLITUS

REACTIONS (10)
  - LUMBAR RADICULOPATHY [None]
  - DIABETES MELLITUS [None]
  - DIABETIC NEUROPATHY [None]
  - EMOTIONAL DISTRESS [None]
  - OSTEOARTHRITIS [None]
  - BLOOD GLUCOSE FLUCTUATION [None]
  - FRACTURE [None]
  - ARTHRITIS [None]
  - PAIN [None]
  - DEPRESSION [None]
